FAERS Safety Report 18956149 (Version 2)
Quarter: 2021Q1

REPORT INFORMATION
  Report Type: Report from Study
  Country: CN (occurrence: CN)
  Receive Date: 20210301
  Receipt Date: 20210330
  Transmission Date: 20210420
  Serious: Yes (Death, Life-Threatening, Hospitalization, Other)
  Sender: FDA-Public Use
  Company Number: CN-BRISTOL-MYERS SQUIBB COMPANY-BMS-2021-018495

PATIENT
  Age: 63 Year
  Sex: Male
  Weight: 57 kg

DRUGS (5)
  1. ETOPOSIDE. [Suspect]
     Active Substance: ETOPOSIDE
     Indication: NON-SMALL CELL LUNG CANCER
     Dosage: 165 MILLIGRAM
     Route: 065
     Dates: start: 20201215, end: 20201215
  2. NIVOLUMAB [Suspect]
     Active Substance: NIVOLUMAB
     Indication: NON-SMALL CELL LUNG CANCER
     Dosage: 360 MILLIGRAM
     Route: 042
     Dates: start: 20201215, end: 20210128
  3. ETOPOSIDE. [Suspect]
     Active Substance: ETOPOSIDE
     Dosage: 163 MILLIGRAM
     Route: 065
     Dates: start: 20210130, end: 20210130
  4. CISPLATIN. [Suspect]
     Active Substance: CISPLATIN
     Dosage: 130 MILLIGRAM
     Route: 065
     Dates: start: 20210128, end: 20210128
  5. CISPLATIN. [Suspect]
     Active Substance: CISPLATIN
     Indication: NON-SMALL CELL LUNG CANCER
     Dosage: 132 MILLIGRAM
     Route: 065
     Dates: start: 20201215, end: 20201215

REACTIONS (1)
  - Tumour haemorrhage [Fatal]

NARRATIVE: CASE EVENT DATE: 20210223
